FAERS Safety Report 8141326-8 (Version None)
Quarter: 2012Q1

REPORT INFORMATION
  Report Type: 
  Country: None (occurrence: None)
  Receive Date: 20120216
  Receipt Date: 20120208
  Transmission Date: 20120608
  Serious: Yes (Hospitalization)
  Sender: FDA-Public Use
  Company Number: SE-B.I. PHARMACEUTICALS,INC./RIDGEFIELD-2009-DE-05942DE

PATIENT
  Sex: Female
  Weight: 68.8 kg

DRUGS (4)
  1. AMILOFERM MITE [Concomitant]
     Dosage: STRENGTH + DAILY DOSE: 2,5MG/25MG
     Route: 048
     Dates: end: 20091205
  2. DABIGATRAN [Suspect]
     Indication: CEREBROVASCULAR ACCIDENT PROPHYLAXIS
     Dosage: RT: 110 MG OR 150 MG B.I.D.
     Route: 048
     Dates: start: 20070502, end: 20090909
  3. METOPROLOL TARTRATE [Concomitant]
     Dosage: 50 MG
     Route: 048
  4. DABIGATRAN [Suspect]
     Indication: ATRIAL FIBRILLATION
     Route: 048
     Dates: start: 20091020

REACTIONS (2)
  - GASTRIC ULCER [None]
  - NEUROBORRELIOSIS [None]
